FAERS Safety Report 5781019-5 (Version None)
Quarter: 2008Q2

REPORT INFORMATION
  Report Type: 
  Country: None (occurrence: None)
  Receive Date: 20080620
  Receipt Date: 20080609
  Transmission Date: 20081010
  Serious: Yes (Other)
  Sender: FDA-Public Use
  Company Number: FR-PFIZER INC-2008049177

PATIENT
  Age: 73 Year
  Sex: Male

DRUGS (1)
  1. SUTENT [Suspect]
     Indication: RENAL NEOPLASM
     Dosage: DAILY DOSE:50MG

REACTIONS (4)
  - ASTHENIA [None]
  - DIARRHOEA [None]
  - OTOTOXICITY [None]
  - THROMBOCYTOPENIA [None]
